FAERS Safety Report 4308792-7 (Version None)
Quarter: 2004Q1

REPORT INFORMATION
  Report Type: 
  Country: None (occurrence: None)
  Receive Date: 20040227
  Receipt Date: 20040218
  Transmission Date: 20041129
  Serious: Yes (Death)
  Sender: FDA-Public Use
  Company Number: USA-2003-0011316

PATIENT
  Age: 32 Year
  Sex: Male
  Weight: 83.4 kg

DRUGS (7)
  1. OXYCODONE HCL [Suspect]
  2. HYDROCODONE BITARTRATE [Suspect]
  3. ACETAMINOPHEN [Suspect]
  4. ETHANOL (ETHANOL) [Suspect]
  5. ALPRAZOLAM [Suspect]
  6. CAFFEINE (CAFFEINE) [Suspect]
  7. TEMAZEPAM [Suspect]

REACTIONS (12)
  - ACCIDENTAL OVERDOSE [None]
  - ATHEROSCLEROSIS [None]
  - BLOOD ETHANOL INCREASED [None]
  - CHEST PAIN [None]
  - COMA [None]
  - DRUG TOXICITY [None]
  - DYSPEPSIA [None]
  - FEELING HOT [None]
  - MULTIPLE DRUG OVERDOSE [None]
  - POISONING [None]
  - PULMONARY CONGESTION [None]
  - PULMONARY OEDEMA [None]
